FAERS Safety Report 6527396-9 (Version None)
Quarter: 2010Q1

REPORT INFORMATION
  Report Type: 
  Country: None (occurrence: None)
  Receive Date: 20100104
  Receipt Date: 20100104
  Transmission Date: 20100710
  Serious: Yes (Other)
  Sender: FDA-Public Use
  Company Number: None

PATIENT
  Age: 60 Year
  Sex: Female
  Weight: 79.3795 kg

DRUGS (2)
  1. ZICAM NASAL SWABS [Suspect]
     Indication: NASOPHARYNGITIS
     Dosage: NASAL
     Route: 045
     Dates: start: 20061205, end: 20061206
  2. ZICAM NASAL SWABS [Suspect]
     Indication: SNEEZING
     Dosage: NASAL
     Route: 045
     Dates: start: 20061205, end: 20061206

REACTIONS (4)
  - BURNING MOUTH SYNDROME [None]
  - DEPRESSION [None]
  - DYSGEUSIA [None]
  - PAROSMIA [None]
